FAERS Safety Report 6117113-9 (Version None)
Quarter: 2009Q1

REPORT INFORMATION
  Report Type: 
  Country: None (occurrence: None)
  Receive Date: 20090314
  Receipt Date: 20090115
  Transmission Date: 20090719
  Serious: Yes (Hospitalization)
  Sender: FDA-Public Use
  Company Number: US-ABBOTT-09P-163-0496381-00

PATIENT
  Sex: Female
  Weight: 111.23 kg

DRUGS (11)
  1. HUMIRA [Suspect]
     Indication: RHEUMATOID ARTHRITIS
     Route: 058
     Dates: start: 20040101
  2. HUMIRA [Suspect]
     Indication: PSORIATIC ARTHROPATHY
  3. PERCOCET [Concomitant]
     Indication: PAIN
  4. DICLOFENIC [Concomitant]
     Indication: RHEUMATOID ARTHRITIS
  5. RELAFEN [Concomitant]
     Indication: RHEUMATOID ARTHRITIS
  6. ARAVA [Concomitant]
     Indication: DRUG USE FOR UNKNOWN INDICATION
  7. LOVOXYL [Concomitant]
     Indication: THYROID DISORDER
  8. FOLTX [Concomitant]
     Indication: RHEUMATOID ARTHRITIS
  9. MULTIPLE VITAMINS [Concomitant]
     Indication: ROUTINE HEALTH MAINTENANCE
  10. ULTRAM [Concomitant]
     Indication: RHEUMATOID ARTHRITIS
  11. SPIRIVA [Concomitant]
     Indication: ASTHMA

REACTIONS (5)
  - ARTHRITIS [None]
  - AURICULAR PERICHONDRITIS [None]
  - PAIN [None]
  - POSTOPERATIVE WOUND INFECTION [None]
  - SPINAL FRACTURE [None]
